FAERS Safety Report 7518088-8 (Version None)
Quarter: 2011Q2

REPORT INFORMATION
  Report Type: 
  Country: None (occurrence: None)
  Receive Date: 20110602
  Receipt Date: 20110527
  Transmission Date: 20111010
  Serious: Yes (Death)
  Sender: FDA-Public Use
  Company Number: DK-JNJFOC-20110201293

PATIENT
  Sex: Male

DRUGS (4)
  1. CONCERTA [Suspect]
     Dosage: CONCERTA 18 MG DEPOTTABLETTER
     Route: 048
     Dates: start: 20110106
  2. CONCERTA [Suspect]
     Indication: RESTLESSNESS
     Dosage: STOP DATE: SEP-2010
     Route: 048
     Dates: start: 20100910
  3. CONCERTA [Suspect]
     Dosage: STOP DATE: SEP-2010
     Route: 048
     Dates: start: 20100910
  4. CONCERTA [Suspect]
     Indication: ATTENTION DEFICIT/HYPERACTIVITY DISORDER
     Dosage: CONCERTA 18 MG DEPOTTABLETTER
     Route: 048
     Dates: start: 20110106

REACTIONS (1)
  - SUDDEN DEATH [None]
